FAERS Safety Report 13142062 (Version 1)
Quarter: 2017Q1

REPORT INFORMATION
  Report Type: Spontaneous
  Country: GB (occurrence: GB)
  Receive Date: 20170124
  Receipt Date: 20170124
  Transmission Date: 20170428
  Serious: Yes (Other)
  Sender: FDA-Public Use
  Company Number: GB-PFIZER INC-2017019648

PATIENT
  Age: 52 Year
  Sex: Female
  Weight: 61 kg

DRUGS (4)
  1. AMITRIPTYLINE [Concomitant]
     Active Substance: AMITRIPTYLINE
     Dosage: UNK
  2. OMEPRAZOLE TEVA /00661201/ [Concomitant]
     Active Substance: OMEPRAZOLE
     Dosage: UNK
  3. SULFASALAZINE. [Suspect]
     Active Substance: SULFASALAZINE
     Indication: PSORIATIC ARTHROPATHY
     Dosage: 500 MG, 3X/DAY
     Route: 048
     Dates: start: 20161112, end: 20161206
  4. ARCOXIA [Concomitant]
     Active Substance: ETORICOXIB
     Dosage: UNK

REACTIONS (3)
  - Migraine [Recovered/Resolved]
  - Eye swelling [Recovered/Resolved]
  - Rash [Recovered/Resolved]

NARRATIVE: CASE EVENT DATE: 20161125
